FAERS Safety Report 10560296 (Version 1)
Quarter: 2014Q4

REPORT INFORMATION
  Report Type: Spontaneous
  Country: US (occurrence: None)
  Receive Date: 20141031
  Receipt Date: 20141031
  Transmission Date: 20150529
  Serious: Yes (Disabling)
  Sender: FDA-Public Use
  Company Number: None

PATIENT
  Age: 46 Year
  Sex: Male
  Weight: 74.84 kg

DRUGS (1)
  1. KLONOPIN [Suspect]
     Active Substance: CLONAZEPAM
     Indication: SOCIAL PHOBIA
     Route: 048

REACTIONS (14)
  - Disturbance in attention [None]
  - Post-traumatic stress disorder [None]
  - Anxiety [None]
  - Insomnia [None]
  - Head discomfort [None]
  - Depression [None]
  - Job change [None]
  - Dyspnoea [None]
  - Paradoxical drug reaction [None]
  - Drug effect decreased [None]
  - Arthralgia [None]
  - Drug dependence [None]
  - Withdrawal syndrome [None]
  - Divorced [None]

NARRATIVE: CASE EVENT DATE: 20130320
